FAERS Safety Report 12004334 (Version 3)
Quarter: 2016Q3

REPORT INFORMATION
  Report Type: Report from Study
  Country: AR (occurrence: AR)
  Receive Date: 20160204
  Receipt Date: 20160906
  Transmission Date: 20161109
  Serious: Yes (Hospitalization)
  Sender: FDA-Public Use
  Company Number: PHHY2016AR015227

PATIENT
  Sex: Male

DRUGS (4)
  1. EXJADE [Suspect]
     Active Substance: DEFERASIROX
     Dosage: 1250 MG, QD
     Route: 065
     Dates: start: 20160215, end: 201602
  2. NEUPOGEN [Concomitant]
     Active Substance: FILGRASTIM
     Dosage: UNK, QD
     Route: 065
  3. EXJADE [Suspect]
     Active Substance: DEFERASIROX
     Indication: BONE MARROW FAILURE
     Dosage: 1250 MG, QD
     Route: 065
     Dates: start: 201510, end: 20160121
  4. NEUPOGEN [Concomitant]
     Active Substance: FILGRASTIM
     Indication: PRODUCT USED FOR UNKNOWN INDICATION
     Dosage: 150 MG, 3 TIMES PER WEEK
     Route: 065

REACTIONS (2)
  - General physical health deterioration [Recovering/Resolving]
  - Haemoglobin decreased [Recovered/Resolved]
